FAERS Safety Report 7263427-9 (Version None)
Quarter: 2011Q1

REPORT INFORMATION
  Report Type: 
  Country: None (occurrence: None)
  Receive Date: 20110130
  Receipt Date: 20101102
  Transmission Date: 20110831
  Serious: No
  Sender: FDA-Public Use
  Company Number: US-ABBOTT-10P-163-0683808-00

PATIENT
  Sex: Female

DRUGS (2)
  1. SULFASALAZINE [Concomitant]
     Indication: PRODUCT USED FOR UNKNOWN INDICATION
     Dates: end: 20090301
  2. HUMIRA [Suspect]
     Indication: CROHN'S DISEASE
     Route: 058
     Dates: start: 20080901, end: 20100401

REACTIONS (4)
  - SWELLING FACE [None]
  - EYE SWELLING [None]
  - HAIR TEXTURE ABNORMAL [None]
  - FAECAL INCONTINENCE [None]
